FAERS Safety Report 5248749-5 (Version None)
Quarter: 2007Q1

REPORT INFORMATION
  Report Type: 
  Country: None (occurrence: None)
  Receive Date: 20070228
  Receipt Date: 20060105
  Transmission Date: 20070707
  Serious: No
  Sender: FDA-Public Use
  Company Number: US-GLAXOSMITHKLINE-A0587955A

PATIENT
  Sex: Male

DRUGS (1)
  1. VALTREX [Suspect]
     Dosage: 1000MG TWICE PER DAY
     Route: 048
     Dates: start: 20051230

REACTIONS (3)
  - ABDOMINAL PAIN [None]
  - DIZZINESS [None]
  - NAUSEA [None]
